FAERS Safety Report 17792486 (Version 2)
Quarter: 2020Q2

REPORT INFORMATION
  Report Type: Spontaneous
  Country: ES (occurrence: ES)
  Receive Date: 20200515
  Receipt Date: 20200520
  Transmission Date: 20200714
  Serious: Yes (Other)
  Sender: FDA-Public Use
  Company Number: ES-PFIZER INC-2020191687

PATIENT
  Age: 87 Year
  Sex: Male

DRUGS (3)
  1. XALATAN [Suspect]
     Active Substance: LATANOPROST
     Dosage: 2 DROP, DAILY
     Route: 047
  2. LATANOPROST. [Suspect]
     Active Substance: LATANOPROST
     Dosage: 2 DROP, DAILY
     Route: 047
  3. EMCONCOR COR [Suspect]
     Active Substance: BISOPROLOL
     Dosage: 0.5 DF, ALTERNATE DAY (1/2 - 0 - 1/2)
     Route: 048

REACTIONS (4)
  - Dyspnoea [Recovered/Resolved]
  - Medication error [Unknown]
  - Bradycardia [Recovered/Resolved]
  - Intentional product misuse [Unknown]
